FAERS Safety Report 23013541 (Version 1)
Quarter: 2023Q4

REPORT INFORMATION
  Report Type: Spontaneous
  Country: US (occurrence: US)
  Receive Date: 20231001
  Receipt Date: 20231001
  Transmission Date: 20240110
  Serious: No
  Sender: FDA-Public Use
  Company Number: US-OPELLA-2023OHG007564

PATIENT

DRUGS (1)
  1. XYZAL [Suspect]
     Active Substance: LEVOCETIRIZINE DIHYDROCHLORIDE
     Dosage: UNK
     Route: 065
     Dates: start: 202309

REACTIONS (4)
  - Cough [Unknown]
  - Upper-airway cough syndrome [Unknown]
  - Emotional distress [Unknown]
  - Sleep deficit [Unknown]

NARRATIVE: CASE EVENT DATE: 20230901
